FAERS Safety Report 4922041-8 (Version None)
Quarter: 2006Q1

REPORT INFORMATION
  Report Type: 
  Country: None (occurrence: None)
  Receive Date: 20060224
  Receipt Date: 20051026
  Transmission Date: 20060701
  Serious: Yes (Hospitalization)
  Sender: FDA-Public Use
  Company Number: PHBS2005JP15820

PATIENT
  Age: 28 Year
  Sex: Female
  Weight: 50 kg

DRUGS (2)
  1. TEGRETOL [Suspect]
     Indication: COMPLEX PARTIAL SEIZURES
     Dosage: 600 MG/DAY
     Route: 048
     Dates: start: 19970101, end: 20050519
  2. TEGRETOL [Suspect]
     Dosage: 600 MG/DAY
     Route: 048
     Dates: start: 20050523

REACTIONS (13)
  - ANTICONVULSANT DRUG LEVEL BELOW THERAPEUTIC [None]
  - BLOOD CREATINE PHOSPHOKINASE INCREASED [None]
  - BRAIN OEDEMA [None]
  - CONVULSION [None]
  - DEPRESSED LEVEL OF CONSCIOUSNESS [None]
  - DRUG WITHDRAWAL SYNDROME [None]
  - ELECTROENCEPHALOGRAM ABNORMAL [None]
  - HEART RATE INCREASED [None]
  - METABOLIC ACIDOSIS [None]
  - NUCLEAR MAGNETIC RESONANCE IMAGING BRAIN ABNORMAL [None]
  - PYREXIA [None]
  - RESPIRATORY RATE INCREASED [None]
  - STATUS EPILEPTICUS [None]
